FAERS Safety Report 4692273-5 (Version None)
Quarter: 2005Q2

REPORT INFORMATION
  Report Type: 
  Country: None (occurrence: None)
  Receive Date: 20050614
  Receipt Date: 20050608
  Transmission Date: 20051028
  Serious: Yes (Disabling)
  Sender: FDA-Public Use
  Company Number: GBWYE728309JUN05

PATIENT
  Age: 39 Year
  Sex: Female

DRUGS (3)
  1. MINOCIN [Suspect]
     Indication: ACNE
     Dosage: 100MG ORAL
     Route: 048
     Dates: start: 20030103, end: 20050401
  2. EFFEXOR [Concomitant]
  3. IMIGRAN (SUMATRIPTAN SUCCINATE) [Concomitant]

REACTIONS (2)
  - FATIGUE [None]
  - SYSTEMIC LUPUS ERYTHEMATOSUS RASH [None]
